FAERS Safety Report 4818811-7 (Version None)
Quarter: 2005Q4

REPORT INFORMATION
  Report Type: 
  Country: None (occurrence: None)
  Receive Date: 20051101
  Receipt Date: 20051019
  Transmission Date: 20060501
  Serious: Yes (Other)
  Sender: FDA-Public Use
  Company Number: 2005144570

PATIENT
  Sex: Female

DRUGS (3)
  1. XALATAN [Suspect]
     Indication: GLAUCOMA
     Dosage: 2 DROP (1 DROP,DAILY INTERVAL: EVERY DAY)
  2. ALPHAGAN [Suspect]
     Indication: ILL-DEFINED DISORDER
  3. TIMOLOL MALEATE [Concomitant]

REACTIONS (4)
  - DACRYOSTENOSIS ACQUIRED [None]
  - DIABETES MELLITUS [None]
  - DRUG HYPERSENSITIVITY [None]
  - EYE DISORDER [None]
